FAERS Safety Report 4976106-5 (Version None)
Quarter: 2006Q2

REPORT INFORMATION
  Report Type: 
  Country: None (occurrence: None)
  Receive Date: 20060411
  Receipt Date: 20060327
  Transmission Date: 20061013
  Serious: Yes (Other)
  Sender: FDA-Public Use
  Company Number: 2006S1002651

PATIENT
  Age: 49 Year
  Sex: Male

DRUGS (6)
  1. CLOZAPINE [Suspect]
     Indication: SCHIZOPHRENIA
     Dosage: 100 MG;QAM;ORAL, 500 MG;HS;ORAL
     Route: 048
     Dates: start: 20030901, end: 20060323
  2. CLOZAPINE [Suspect]
     Indication: SCHIZOPHRENIA
     Dosage: 100 MG;QAM;ORAL, 500 MG;HS;ORAL
     Route: 048
     Dates: start: 20030901, end: 20060323
  3. FLUOXETINE [Concomitant]
  4. HYDROCHLORIDE [Concomitant]
  5. ARIPIPRAZOLE [Concomitant]
  6. DESMOPRESSIN [Concomitant]

REACTIONS (2)
  - CEREBROVASCULAR ACCIDENT [None]
  - NEUTROPHIL COUNT INCREASED [None]
